FAERS Safety Report 15820086 (Version 5)
Quarter: 2023Q1

REPORT INFORMATION
  Report Type: Spontaneous
  Country: PT (occurrence: PT)
  Receive Date: 20190114
  Receipt Date: 20230222
  Transmission Date: 20230418
  Serious: Yes (Hospitalization, Other)
  Sender: FDA-Public Use
  Company Number: PHHY2019PT004312

PATIENT
  Age: 61 Year
  Sex: Male

DRUGS (1)
  1. AMOXICILLIN\CLAVULANATE POTASSIUM [Suspect]
     Active Substance: AMOXICILLIN\CLAVULANATE POTASSIUM
     Indication: Respiratory tract infection
     Dosage: UNK
     Route: 048

REACTIONS (6)
  - Cholestasis [Recovered/Resolved]
  - Decreased appetite [Recovered/Resolved]
  - Faeces pale [Recovered/Resolved]
  - Pruritus [Recovered/Resolved]
  - Choluria [Recovered/Resolved]
  - Jaundice cholestatic [Recovered/Resolved]
